FAERS Safety Report 16039192 (Version 2)
Quarter: 2019Q2

REPORT INFORMATION
  Report Type: Spontaneous
  Country: US (occurrence: US)
  Receive Date: 20190306
  Receipt Date: 20190413
  Transmission Date: 20190711
  Serious: Yes (Other)
  Sender: FDA-Public Use
  Company Number: US-009507513-1902USA011707

PATIENT
  Age: 62 Year
  Sex: Male
  Weight: 62.6 kg

DRUGS (1)
  1. LOSARTAN POTASSIUM TABLETS [Suspect]
     Active Substance: LOSARTAN POTASSIUM
     Route: 048

REACTIONS (5)
  - Hypotension [Unknown]
  - Dedifferentiated liposarcoma [Unknown]
  - Tumour pain [Unknown]
  - Aortic valve replacement [Unknown]
  - Insomnia [Unknown]

NARRATIVE: CASE EVENT DATE: 201010
